FAERS Safety Report 8506967-4 (Version None)
Quarter: 2012Q3

REPORT INFORMATION
  Report Type: 
  Country: None (occurrence: None)
  Receive Date: 20120712
  Receipt Date: 20120706
  Transmission Date: 20120928
  Serious: Yes (Disabling)
  Sender: FDA-Public Use
  Company Number: FR-UCBSA-054400

PATIENT
  Age: 39 Year
  Sex: Female

DRUGS (5)
  1. METHOTREXATE SODIUM [Concomitant]
     Indication: MUSCULOSKELETAL PAIN
     Dates: start: 20110201
  2. CIMZIA [Suspect]
     Indication: MUSCULOSKELETAL PAIN
     Route: 058
     Dates: start: 20111101, end: 20120614
  3. PREDNISONE TAB [Concomitant]
     Dosage: 5 MG DAILY
  4. ACETAMINOPHEN [Concomitant]
  5. FOLIC ACID [Concomitant]

REACTIONS (1)
  - AMAUROSIS [None]
